FAERS Safety Report 7700849-3 (Version None)
Quarter: 2011Q3

REPORT INFORMATION
  Report Type: 
  Country: None (occurrence: None)
  Receive Date: 20110822
  Receipt Date: 20110812
  Transmission Date: 20111222
  Serious: Yes (Hospitalization)
  Sender: FDA-Public Use
  Company Number: US-ROCHE-797649

PATIENT
  Age: 53 Year
  Sex: Male

DRUGS (1)
  1. PEGASYS [Suspect]
     Dosage: TOOK IN 2002 FOR ONE YEAR
     Route: 065
     Dates: start: 20020101

REACTIONS (2)
  - CHOLELITHIASIS [None]
  - PNEUMONIA [None]
